FAERS Safety Report 5044929-2 (Version None)
Quarter: 2006Q2

REPORT INFORMATION
  Report Type: 
  Country: None (occurrence: None)
  Receive Date: 20060601
  Receipt Date: 20060321
  Transmission Date: 20061013
  Serious: No
  Sender: FDA-Public Use
  Company Number: US200603005518

PATIENT
  Age: 53 Year
  Sex: Female

DRUGS (3)
  1. CYMBALTA [Suspect]
     Indication: AFFECTIVE DISORDER
     Dosage: SEE IMAGE
     Dates: start: 20050101, end: 20050101
  2. CYMBALTA [Suspect]
     Indication: AFFECTIVE DISORDER
     Dosage: SEE IMAGE
     Dates: start: 20050101, end: 20060201
  3. HYDROCHLOROTHIAZIDE [Concomitant]

REACTIONS (4)
  - DIZZINESS [None]
  - INSOMNIA [None]
  - NAUSEA [None]
  - STRESS INCONTINENCE [None]
